FAERS Safety Report 11648078 (Version 1)
Quarter: 2015Q4

REPORT INFORMATION
  Report Type: Report from Study
  Country: CA (occurrence: CA)
  Receive Date: 20151021
  Receipt Date: 20151021
  Transmission Date: 20160304
  Serious: Yes (Other)
  Sender: FDA-Public Use
  Company Number: CA-BIOGENIDEC-2014BI068101

PATIENT
  Age: 63 Year
  Sex: Female

DRUGS (1)
  1. TYSABRI [Suspect]
     Active Substance: NATALIZUMAB
     Indication: MULTIPLE SCLEROSIS
     Route: 042
     Dates: start: 20080408

REACTIONS (12)
  - Pain in extremity [Not Recovered/Not Resolved]
  - Restless legs syndrome [Unknown]
  - Fatigue [Not Recovered/Not Resolved]
  - Musculoskeletal stiffness [Not Recovered/Not Resolved]
  - Anaemia [Unknown]
  - Middle insomnia [Unknown]
  - Gastrointestinal carcinoma [Unknown]
  - General symptom [Unknown]
  - Crying [Unknown]
  - Multiple sclerosis relapse [Unknown]
  - Laziness [Unknown]
  - Poor quality sleep [Unknown]

NARRATIVE: CASE EVENT DATE: 20140604
